FAERS Safety Report 5820356-2 (Version None)
Quarter: 2008Q3

REPORT INFORMATION
  Report Type: 
  Country: None (occurrence: None)
  Receive Date: 20080724
  Receipt Date: 20070614
  Transmission Date: 20090109
  Serious: No
  Sender: FDA-Public Use
  Company Number: A0656633A

PATIENT
  Age: 53 Year
  Sex: Male

DRUGS (3)
  1. AVANDIA [Suspect]
     Dosage: 4MG PER DAY
     Route: 048
     Dates: start: 20070508, end: 20070611
  2. METFORMIN [Concomitant]
  3. GLIMEPIRIDE [Concomitant]

REACTIONS (6)
  - ASTHENIA [None]
  - BLOOD GLUCOSE DECREASED [None]
  - BLOOD PRESSURE INCREASED [None]
  - HEADACHE [None]
  - MUSCLE SPASMS [None]
  - NAUSEA [None]
